FAERS Safety Report 23952343 (Version 1)
Quarter: 2024Q2

REPORT INFORMATION
  Report Type: Spontaneous
  Country: CA (occurrence: CA)
  Receive Date: 20240607
  Receipt Date: 20240607
  Transmission Date: 20240716
  Serious: Yes (Hospitalization, Other)
  Sender: FDA-Public Use
  Company Number: CA-BAYER-2024A058184

PATIENT
  Age: 48 Year
  Sex: Female

DRUGS (1)
  1. MIRENA [Suspect]
     Active Substance: LEVONORGESTREL
     Dosage: 20?G/DAY
     Route: 015
     Dates: start: 201202, end: 20140526

REACTIONS (4)
  - Embedded device [None]
  - Urinary incontinence [None]
  - Hypertonic bladder [None]
  - Abdominal pain lower [None]

NARRATIVE: CASE EVENT DATE: 20140709
